FAERS Safety Report 17073652 (Version 2)
Quarter: 2019Q4

REPORT INFORMATION
  Report Type: Report from Study
  Country: FR (occurrence: FR)
  Receive Date: 20191126
  Receipt Date: 20191223
  Transmission Date: 20200122
  Serious: Yes (Other)
  Sender: FDA-Public Use
  Company Number: FR-ALEXION PHARMACEUTICALS INC.-A201918103

PATIENT
  Sex: Female
  Weight: 60 kg

DRUGS (34)
  1. ECULIZUMAB [Suspect]
     Active Substance: ECULIZUMAB
     Dosage: 1200 MG, QMONTH
     Route: 065
     Dates: start: 20130802
  2. CORTANCYL [Concomitant]
     Active Substance: PREDNISONE
     Indication: PROPHYLAXIS
     Dosage: UNK
     Route: 048
     Dates: start: 20100915
  3. CORTANCYL [Concomitant]
     Active Substance: PREDNISONE
     Indication: BK VIRUS INFECTION
     Dosage: 5 MG, QD
     Route: 065
  4. DIFFU K [Concomitant]
     Active Substance: POTASSIUM CHLORIDE
     Indication: PROPHYLAXIS
     Dosage: UNK
     Route: 048
     Dates: start: 20101117
  5. ADVAGRAF [Concomitant]
     Active Substance: TACROLIMUS
     Indication: IMMUNOSUPPRESSION
     Dosage: 2 MG, QD
     Route: 048
     Dates: start: 20161012
  6. CERTICAN [Concomitant]
     Active Substance: EVEROLIMUS
     Indication: TRANSPLANT REJECTION
     Dosage: 5 NG/ML
     Route: 065
  7. ORACILLINE                         /00001801/ [Concomitant]
     Active Substance: PENICILLIN V
     Dosage: 1 MILLION IU, BID
     Route: 065
  8. PARACETAMOL [Concomitant]
     Active Substance: ACETAMINOPHEN
     Indication: PYREXIA
     Dosage: 1 G, UNK
     Route: 065
  9. AMLOR [Concomitant]
     Active Substance: AMLODIPINE BESYLATE
     Indication: PRODUCT USED FOR UNKNOWN INDICATION
     Dosage: 5 MG, QD
     Route: 065
  10. PARIET [Concomitant]
     Active Substance: RABEPRAZOLE SODIUM
     Indication: PROPHYLAXIS
     Dosage: UNK
     Route: 048
     Dates: start: 20120504
  11. PARIET [Concomitant]
     Active Substance: RABEPRAZOLE SODIUM
     Dosage: 20 MG, QD
     Route: 065
  12. ADVAGRAF [Concomitant]
     Active Substance: TACROLIMUS
     Indication: TRANSPLANT REJECTION
     Dosage: 2.5 MG, QD
     Route: 065
  13. EUCREAS [Concomitant]
     Active Substance: METFORMIN HYDROCHLORIDE\VILDAGLIPTIN
     Dosage: 50/1000 MG, BID
     Route: 065
  14. CYS CONTROL [Concomitant]
     Dosage: 1 L, QD
     Route: 065
  15. ECULIZUMAB [Suspect]
     Active Substance: ECULIZUMAB
     Indication: ATYPICAL HAEMOLYTIC URAEMIC SYNDROME
     Dosage: UNK
     Route: 065
  16. ECULIZUMAB [Suspect]
     Active Substance: ECULIZUMAB
     Dosage: UNK, Q3W
     Route: 065
     Dates: start: 201610
  17. ECULIZUMAB [Suspect]
     Active Substance: ECULIZUMAB
     Dosage: UNK MG, QMONTH
     Route: 065
     Dates: start: 20190719
  18. CERTICAN [Concomitant]
     Active Substance: EVEROLIMUS
     Dosage: 1 MG, BID
     Route: 065
  19. EUCREAS [Concomitant]
     Active Substance: METFORMIN HYDROCHLORIDE\VILDAGLIPTIN
     Indication: NEW ONSET DIABETES AFTER TRANSPLANTATION
     Dosage: UNK
     Route: 065
     Dates: start: 201804
  20. KALEORID [Concomitant]
     Active Substance: POTASSIUM CHLORIDE
     Indication: PRODUCT USED FOR UNKNOWN INDICATION
     Dosage: 2 TABS, BID
     Route: 065
  21. URELLE [Concomitant]
     Active Substance: HYOSCYAMINE SULFATE\METHENAMINE\METHYLENE BLUE\PHENYL SALICYLATE\SODIUM PHOSPHATE, MONOBASIC, MONOHYDRATE
     Indication: ESCHERICHIA PYELONEPHRITIS
     Dosage: 1 CAPSULE, QD
     Route: 065
  22. TAHOR [Concomitant]
     Active Substance: ATORVASTATIN CALCIUM
     Dosage: 40 MG, QD
     Route: 065
  23. MAGNE B6 [Concomitant]
     Active Substance: MAGNESIUM\PYRIDOXINE
     Indication: PROPHYLAXIS
     Dosage: UNK
     Route: 048
     Dates: start: 20101013
  24. METFORMINE [Concomitant]
     Active Substance: METFORMIN HYDROCHLORIDE
     Indication: STEROID DIABETES
     Dosage: UNK
     Route: 048
     Dates: start: 20160720
  25. CERTICAN [Concomitant]
     Active Substance: EVEROLIMUS
     Indication: BK VIRUS INFECTION
     Dosage: UNK
     Route: 048
     Dates: start: 20150522
  26. ATENOLOL. [Concomitant]
     Active Substance: ATENOLOL
     Indication: PRODUCT USED FOR UNKNOWN INDICATION
     Dosage: 50 MG, QD
     Route: 065
  27. METFORMINE [Concomitant]
     Active Substance: METFORMIN HYDROCHLORIDE
     Indication: NEW ONSET DIABETES AFTER TRANSPLANTATION
  28. APROVEL [Concomitant]
     Active Substance: IRBESARTAN
     Indication: PRODUCT USED FOR UNKNOWN INDICATION
     Dosage: 150 MG IN THE AM AND 75 MG AT PM, BID
     Route: 065
  29. ORACILLINE                         /00001801/ [Concomitant]
     Active Substance: PENICILLIN V
     Indication: PROPHYLAXIS
     Dosage: UNK
     Route: 048
     Dates: start: 20100915
  30. ORACILLINE                         /00001801/ [Concomitant]
     Active Substance: PENICILLIN V
     Dosage: UNK
     Route: 048
     Dates: start: 20100919
  31. TAHOR [Concomitant]
     Active Substance: ATORVASTATIN CALCIUM
     Indication: DYSLIPIDAEMIA
     Dosage: UNK
     Route: 048
     Dates: start: 20110502
  32. MAGNE B6 [Concomitant]
     Active Substance: MAGNESIUM\PYRIDOXINE
     Dosage: 1 CAPSULE, BID
     Route: 065
  33. ADVAGRAF [Concomitant]
     Active Substance: TACROLIMUS
     Indication: PROPHYLAXIS
     Dosage: UNK
     Route: 048
     Dates: start: 20100915, end: 20160111
  34. IRON [Concomitant]
     Active Substance: IRON
     Indication: BLOOD IRON DECREASED
     Dosage: 500 MG, UNK
     Route: 065

REACTIONS (1)
  - Pyelonephritis [Recovered/Resolved]

NARRATIVE: CASE EVENT DATE: 20190731
